FAERS Safety Report 23017954 (Version 1)
Quarter: 2023Q4

REPORT INFORMATION
  Report Type: Spontaneous
  Country: RU (occurrence: None)
  Receive Date: 20231003
  Receipt Date: 20231003
  Transmission Date: 20240110
  Serious: Yes (Other)
  Sender: FDA-Public Use
  Company Number: RU-ROCHE-3429248

PATIENT
  Sex: Female

DRUGS (4)
  1. TRASTUZUMAB [Suspect]
     Active Substance: TRASTUZUMAB
     Indication: Breast cancer
     Dosage: FOUR CYCLES OF AC + 4 CYCLES OF DOCETAXEL + TRASTUZUMAB
     Route: 065
  2. ADO-TRASTUZUMAB EMTANSINE [Suspect]
     Active Substance: ADO-TRASTUZUMAB EMTANSINE
     Indication: Breast cancer
     Dosage: ONGOING TARGETED THERAPY, HORMONE THERAPY, 7 CYCLES OF TRASTUZUMAB EMTANSINE + TAMOXIFEN
     Route: 065
     Dates: start: 20201015, end: 20201105
  3. DOCETAXEL [Suspect]
     Active Substance: DOCETAXEL
     Indication: Breast cancer
     Dosage: FOUR CYCLES OF AC + 4 CYCLES OF DOCETAXEL + TRASTUZUMAB
     Route: 065
  4. TAMOXIFEN [Suspect]
     Active Substance: TAMOXIFEN
     Indication: Breast cancer
     Dosage: ONGOING TARGETED THERAPY, HORMONE THERAPY, 7 CYCLES OF TRASTUZUMAB EMTANSINE + TAMOXIFEN
     Route: 065
     Dates: start: 20201015, end: 20201105

REACTIONS (6)
  - Mitral valve incompetence [Unknown]
  - Tricuspid valve incompetence [Unknown]
  - Brachiocephalic arteriosclerosis [Unknown]
  - Pulmonary valve incompetence [Unknown]
  - Dyslipidaemia [Unknown]
  - Hypertension [Unknown]
